FAERS Safety Report 15992290 (Version 1)
Quarter: 2019Q1

REPORT INFORMATION
  Report Type: Spontaneous
  Country: FR (occurrence: FR)
  Receive Date: 20190221
  Receipt Date: 20190221
  Transmission Date: 20190418
  Serious: Yes (Life-Threatening, Other)
  Sender: FDA-Public Use
  Company Number: PHHY2019FR040251

PATIENT
  Age: 39 Year
  Sex: Female
  Weight: 60 kg

DRUGS (6)
  1. CORTANCYL [Suspect]
     Active Substance: PREDNISONE
     Indication: POISONING DELIBERATE
     Dosage: 7 DF, QD
     Route: 048
     Dates: start: 20170513, end: 20170513
  2. INEXIUM [Concomitant]
     Active Substance: ESOMEPRAZOLE
     Indication: PRODUCT USED FOR UNKNOWN INDICATION
     Route: 065
  3. METFORMIN [Suspect]
     Active Substance: METFORMIN HYDROCHLORIDE
     Indication: POISONING DELIBERATE
     Dosage: 7 G, QD
     Route: 048
     Dates: start: 20170513, end: 20170513
  4. INSULINE [Concomitant]
     Active Substance: INSULIN NOS
     Indication: PRODUCT USED FOR UNKNOWN INDICATION
     Route: 065
  5. RAMIPRIL. [Suspect]
     Active Substance: RAMIPRIL
     Indication: POISONING DELIBERATE
     Dosage: 8.75 MG, QD
     Route: 048
     Dates: start: 20170513, end: 20170513
  6. LIPANTHYL [Suspect]
     Active Substance: FENOFIBRATE
     Indication: POISONING DELIBERATE
     Dosage: 5 DF, QD
     Route: 048
     Dates: start: 20170513, end: 20170513

REACTIONS (4)
  - Lactic acidosis [Recovered/Resolved]
  - Hyperkalaemia [Recovered/Resolved]
  - Poisoning deliberate [Recovered/Resolved]
  - Acute kidney injury [Recovered/Resolved]

NARRATIVE: CASE EVENT DATE: 20170513
